FAERS Safety Report 4690466-4 (Version None)
Quarter: 2005Q2

REPORT INFORMATION
  Report Type: 
  Country: None (occurrence: None)
  Receive Date: 20050615
  Receipt Date: 20050517
  Transmission Date: 20051028
  Serious: Yes (Life-Threatening, Hospitalization, Other)
  Sender: FDA-Public Use
  Company Number: 2005AP02878

PATIENT
  Age: 22481 Day
  Sex: Female

DRUGS (8)
  1. SEROQUEL [Suspect]
     Indication: DELIRIUM
     Route: 048
     Dates: start: 20050217, end: 20050423
  2. CONTMIN [Concomitant]
     Indication: SCHIZOPHRENIA
     Dosage: DIVIDED INTO 4 DOSES, COMMENCED BEFORE 2004
     Route: 048
     Dates: end: 20050424
  3. GRAMALIL [Concomitant]
     Indication: DELIRIUM
     Dosage: COMMENCED BEFORE 2004
     Route: 048
  4. LITHIUM CARBONATE [Concomitant]
     Dosage: COMMENCED BEFORE 2004
  5. LORAZEPAM [Concomitant]
     Indication: SCHIZOPHRENIA
     Dosage: DIVIDED INTO 4 DOSES, COMMENCED BEFORE 2004
     Route: 048
  6. AKINETON [Concomitant]
     Indication: PARKINSONISM
     Dosage: DIVIDED INTO 4 DOSES, COMMENCED BEFORE 2004
     Route: 048
  7. BROTIZOLAM [Concomitant]
     Indication: INSOMNIA
     Dosage: COMMENCED BEFORE 2004
     Route: 048
  8. SENNOSIDE [Concomitant]
     Indication: CONSTIPATION
     Dosage: COMMENCED BEFORE 2004
     Route: 048

REACTIONS (2)
  - LEUKOPENIA [None]
  - PYREXIA [None]
